FAERS Safety Report 17597334 (Version 1)
Quarter: 2020Q1

REPORT INFORMATION
  Report Type: Spontaneous
  Country: US (occurrence: US)
  Receive Date: 20200330
  Receipt Date: 20200330
  Transmission Date: 20200409
  Serious: No
  Sender: FDA-Public Use
  Company Number: US-HTU-2020US020338

PATIENT
  Sex: Male

DRUGS (1)
  1. VALCHLOR [Suspect]
     Active Substance: MECHLORETHAMINE
     Indication: CUTANEOUS T-CELL LYMPHOMA
     Dosage: UNK, SINGLE
     Route: 061

REACTIONS (5)
  - Application site exfoliation [Unknown]
  - Application site fissure [Unknown]
  - Application site pain [Unknown]
  - Application site haemorrhage [Unknown]
  - Condition aggravated [Unknown]
